FAERS Safety Report 6232405-0 (Version None)
Quarter: 2009Q2

REPORT INFORMATION
  Report Type: 
  Country: None (occurrence: None)
  Receive Date: 20090617
  Receipt Date: 20090608
  Transmission Date: 20091009
  Serious: Yes (Hospitalization, Other)
  Sender: FDA-Public Use
  Company Number: PHEH2009US05235

PATIENT
  Sex: Female

DRUGS (18)
  1. EXJADE [Suspect]
     Indication: ANAEMIA
     Dosage: 500 MG, BID
     Dates: start: 20090122
  2. CONTINUOUS POSITIVE AIRWAY PRESSURE [Concomitant]
  3. LIPITOR [Concomitant]
  4. COREG [Concomitant]
  5. CELEXA [Concomitant]
  6. LACTULOSE [Concomitant]
  7. LISINOPRIL [Concomitant]
  8. MIRALAX [Concomitant]
  9. COUMADIN [Concomitant]
  10. EPOGEN [Concomitant]
  11. NEUPOGEN [Concomitant]
  12. LASIX [Concomitant]
  13. RENAGEL [Concomitant]
  14. LOVAZA [Concomitant]
  15. TRICOR [Concomitant]
  16. PREVACID [Concomitant]
  17. SULAR [Concomitant]
  18. FLAGYL [Concomitant]
     Dosage: UNK

REACTIONS (15)
  - ABDOMINAL PAIN [None]
  - ACIDOSIS [None]
  - ACUTE MYOCARDIAL INFARCTION [None]
  - ATRIAL FIBRILLATION [None]
  - BODY TEMPERATURE INCREASED [None]
  - CARDIOMYOPATHY [None]
  - CLOSTRIDIUM DIFFICILE COLITIS [None]
  - DIARRHOEA [None]
  - DIASTOLIC DYSFUNCTION [None]
  - DYSPEPSIA [None]
  - DYSPNOEA [None]
  - EJECTION FRACTION DECREASED [None]
  - HYPOTENSION [None]
  - PNEUMONIA [None]
  - PULMONARY OEDEMA [None]
